FAERS Safety Report 6582583-9 (Version None)
Quarter: 2010Q1

REPORT INFORMATION
  Report Type: 
  Country: None (occurrence: None)
  Receive Date: 20100203
  Receipt Date: 20100121
  Transmission Date: 20100710
  Serious: Yes (Hospitalization, Other)
  Sender: FDA-Public Use
  Company Number: 238649K09USA

PATIENT
  Age: 58 Year
  Sex: Female

DRUGS (7)
  1. REBIF [Suspect]
     Indication: MULTIPLE SCLEROSIS
     Dosage: 44 MCG, 3 IIN 1 WEEKS, SUBCUTANEOUS
     Route: 058
     Dates: start: 20080812
  2. TYLENOL (COLTYLENOL) [Concomitant]
  3. CITALOPRAM HYDROBROMIDE [Concomitant]
  4. NEXIUM [Concomitant]
  5. TOPIRAMATE [Concomitant]
  6. AMANTADINE HCL [Concomitant]
  7. VESICARE [Concomitant]

REACTIONS (6)
  - ARTHRALGIA [None]
  - BURNING SENSATION [None]
  - DRUG DOSE OMISSION [None]
  - FOOT DEFORMITY [None]
  - INJECTION SITE PAIN [None]
  - MENISCUS LESION [None]
